FAERS Safety Report 20130965 (Version 3)
Quarter: 2021Q4

REPORT INFORMATION
  Report Type: Spontaneous
  Country: TH (occurrence: TH)
  Receive Date: 20211130
  Receipt Date: 20211206
  Transmission Date: 20220303
  Serious: No
  Sender: FDA-Public Use
  Company Number: TH-009507513-2111THA008921

PATIENT
  Age: 72 Year
  Sex: Female

DRUGS (4)
  1. KEYTRUDA [Suspect]
     Active Substance: PEMBROLIZUMAB
     Indication: Transitional cell carcinoma
     Dosage: 200 MG / IV/3 WEEKS.
     Route: 042
     Dates: start: 20211027
  2. KEYTRUDA [Suspect]
     Active Substance: PEMBROLIZUMAB
     Dosage: 200 MG / IV/3 WEEKS.
     Route: 042
     Dates: start: 20211118
  3. VITAMIN B [Concomitant]
     Active Substance: VITAMIN B
     Indication: Intervertebral disc protrusion
  4. CALCIUM [Concomitant]
     Active Substance: CALCIUM
     Indication: Intervertebral disc protrusion

REACTIONS (5)
  - Fatigue [Not Recovered/Not Resolved]
  - Dyspnoea [Not Recovered/Not Resolved]
  - Thyroid hormones decreased [Not Recovered/Not Resolved]
  - Off label use [Unknown]
  - Inappropriate schedule of product administration [Unknown]

NARRATIVE: CASE EVENT DATE: 20210101
